FAERS Safety Report 9812025 (Version 11)
Quarter: 2015Q2

REPORT INFORMATION
  Report Type: Spontaneous
  Country: US (occurrence: US)
  Receive Date: 20140110
  Receipt Date: 20150529
  Transmission Date: 20150821
  Serious: Yes (Hospitalization, Other)
  Sender: FDA-Public Use
  Company Number: US-SANOFI-AVENTIS-2013SA068676

PATIENT
  Age: 56 Year
  Sex: Male
  Weight: 115.6 kg

DRUGS (27)
  1. PLAVIX [Suspect]
     Active Substance: CLOPIDOGREL BISULFATE
     Indication: STENT PLACEMENT
     Route: 065
     Dates: start: 200705
  2. PLAVIX [Suspect]
     Active Substance: CLOPIDOGREL BISULFATE
     Indication: CARDIOVASCULAR EVENT PROPHYLAXIS
     Route: 065
     Dates: start: 200705
  3. PLAVIX [Suspect]
     Active Substance: CLOPIDOGREL BISULFATE
     Indication: STENT PLACEMENT
     Route: 065
     Dates: start: 20131029, end: 20141030
  4. ZOCOR [Concomitant]
     Active Substance: SIMVASTATIN
     Dosage: STRENGTH:40 MG
     Route: 048
  5. CARVEDILOL. [Concomitant]
     Active Substance: CARVEDILOL
     Dosage: 3.125 MG
     Route: 048
  6. FLUTICASONE/SALMETEROL [Concomitant]
     Route: 055
     Dates: start: 20110726, end: 20140815
  7. PLAVIX [Suspect]
     Active Substance: CLOPIDOGREL BISULFATE
     Indication: CARDIOVASCULAR EVENT PROPHYLAXIS
     Route: 065
     Dates: start: 20131029, end: 20141030
  8. ASPIRIN. [Suspect]
     Active Substance: ASPIRIN
     Route: 048
  9. COLCRYS [Concomitant]
     Active Substance: COLCHICINE
  10. PLAVIX [Suspect]
     Active Substance: CLOPIDOGREL BISULFATE
     Indication: CARDIOVASCULAR EVENT PROPHYLAXIS
     Route: 065
     Dates: start: 20141107
  11. ASPIRIN. [Suspect]
     Active Substance: ASPIRIN
     Route: 048
     Dates: start: 20140102, end: 20141018
  12. LATANOPROST. [Concomitant]
     Active Substance: LATANOPROST
     Dosage: BOTH EYES DOSE:1 UNIT(S)
  13. PLAVIX [Suspect]
     Active Substance: CLOPIDOGREL BISULFATE
     Indication: STENT PLACEMENT
     Route: 065
     Dates: start: 20141107
  14. TAMSULOSIN [Concomitant]
     Active Substance: TAMSULOSIN
     Route: 048
  15. VERAPAMIL [Concomitant]
     Active Substance: VERAPAMIL HYDROCHLORIDE
     Route: 048
     Dates: start: 20110726, end: 20140815
  16. VITAMIN E [Concomitant]
     Active Substance: .ALPHA.-TOCOPHEROL
  17. METOPROLOL [Concomitant]
     Active Substance: METOPROLOL
     Route: 048
  18. OMEPRAZOLE. [Concomitant]
     Active Substance: OMEPRAZOLE
  19. CEFDINIR. [Concomitant]
     Active Substance: CEFDINIR
     Dates: start: 20110726, end: 20140815
  20. ALLOPURINOL. [Concomitant]
     Active Substance: ALLOPURINOL
     Indication: HYPERURICAEMIA
  21. ADVAIR HFA [Concomitant]
     Active Substance: FLUTICASONE PROPIONATE\SALMETEROL XINAFOATE
  22. ATORVASTATIN CALCIUM. [Concomitant]
     Active Substance: ATORVASTATIN CALCIUM
     Indication: BLOOD CHOLESTEROL ABNORMAL
     Dosage: TAKE ONE-HALF TABLET BY MOUTH EVERY DAY
     Dates: start: 20141101, end: 20141102
  23. ASPIRIN. [Suspect]
     Active Substance: ASPIRIN
     Route: 048
     Dates: start: 20131017
  24. VITAMIN C [Concomitant]
     Active Substance: ASCORBIC ACID
  25. NITROGLYCERINE [Concomitant]
     Active Substance: NITROGLYCERIN
     Route: 060
  26. BRILINTA [Concomitant]
     Active Substance: TICAGRELOR
     Route: 048
  27. ENOXAPARIN [Concomitant]
     Active Substance: ENOXAPARIN
     Dates: start: 20110726, end: 20110726

REACTIONS (3)
  - Haematospermia [Unknown]
  - Haemorrhage [Unknown]
  - Erectile dysfunction [Unknown]

NARRATIVE: CASE EVENT DATE: 20070919
